FAERS Safety Report 7279589-3 (Version None)
Quarter: 2011Q1

REPORT INFORMATION
  Report Type: 
  Country: None (occurrence: None)
  Receive Date: 20110203
  Receipt Date: 20110203
  Transmission Date: 20110831
  Serious: No
  Sender: FDA-Public Use
  Company Number: None

PATIENT
  Age: 64 Year
  Sex: Male
  Weight: 166.4701 kg

DRUGS (2)
  1. DARVOCET [Suspect]
     Indication: POSTOPERATIVE ANALGESIA
     Dosage: 100-650 1 TAB EVERY 4 HOURS
     Dates: start: 20101119
  2. DARVOCET [Suspect]
     Indication: POSTOPERATIVE ANALGESIA
     Dosage: 100-650 1 TAB EVERY 4 HOURS
     Dates: start: 20101121

REACTIONS (3)
  - DIZZINESS [None]
  - BALANCE DISORDER [None]
  - PRODUCT QUALITY ISSUE [None]
